FAERS Safety Report 5845193-4 (Version None)
Quarter: 2008Q3

REPORT INFORMATION
  Report Type: 
  Country: None (occurrence: None)
  Receive Date: 20080731
  Receipt Date: 20080616
  Transmission Date: 20090109
  Serious: No
  Sender: FDA-Public Use
  Company Number: US200804005755

PATIENT
  Age: 53 Year
  Sex: Female
  Weight: 88.4 kg

DRUGS (3)
  1. BYETTA [Suspect]
     Indication: TYPE 2 DIABETES MELLITUS
     Dosage: 5 UG, 2/D, SUBCUTANEOUS
     Route: 058
     Dates: start: 20070401
  2. GLUCOPHAGE /SCH/ (METFORMIN HYDROCHLORIDE) [Concomitant]
  3. PRANDIN (DEFLAZACORT) [Concomitant]

REACTIONS (3)
  - BLOOD GLUCOSE INCREASED [None]
  - ENERGY INCREASED [None]
  - WEIGHT DECREASED [None]
